FAERS Safety Report 18129246 (Version 1)
Quarter: 2020Q3

REPORT INFORMATION
  Report Type: Spontaneous
  Country: FR (occurrence: FR)
  Receive Date: 20200810
  Receipt Date: 20200810
  Transmission Date: 20201103
  Serious: Yes (Other)
  Sender: FDA-Public Use
  Company Number: FR-BRISTOL-MYERS SQUIBB COMPANY-BMS-2020-063280

PATIENT
  Age: 89 Year
  Sex: Male
  Weight: 76 kg

DRUGS (1)
  1. ELIQUIS [Suspect]
     Active Substance: APIXABAN
     Indication: CEREBROVASCULAR ACCIDENT PROPHYLAXIS
     Dosage: 2.5 MILLIGRAM, BID
     Route: 065
     Dates: start: 2020

REACTIONS (4)
  - White blood cell count decreased [Unknown]
  - Haematoma [Unknown]
  - Cardiac failure [Unknown]
  - Haemoglobin decreased [Unknown]
